FAERS Safety Report 20428922 (Version 1)
Quarter: 2022Q1

REPORT INFORMATION
  Report Type: Spontaneous
  Country: JP (occurrence: JP)
  Receive Date: 20220204
  Receipt Date: 20220204
  Transmission Date: 20220423
  Serious: Yes (Other)
  Sender: FDA-Public Use
  Company Number: JP-JNJFOC-20211008454

PATIENT
  Age: 58 Year
  Sex: Female

DRUGS (10)
  1. VELCADE [Suspect]
     Active Substance: BORTEZOMIB
     Indication: Plasma cell myeloma
     Dosage: ON DAYS 1, 4, 8, AND 11 21-DAY CYCLE
     Route: 058
  2. DARZALEX [Suspect]
     Active Substance: DARATUMUMAB
     Indication: Plasma cell myeloma
     Dosage: ON DAYS 1, 8, AND 15- REGIMEN 1
     Route: 041
  3. DARZALEX [Suspect]
     Active Substance: DARATUMUMAB
     Dosage: ON DAYS 1, 8, 15 AND 22 - REGIMEN 2
     Route: 041
  4. DEXAMETHASONE [Suspect]
     Active Substance: DEXAMETHASONE
     Indication: Plasma cell myeloma
     Dosage: ON DAYS 1 AND 8 -REGIMEN1,
     Route: 065
  5. DEXAMETHASONE [Suspect]
     Active Substance: DEXAMETHASONE
     Dosage: ON DAYS 1, 2, 8, 9, 15, AND 16- REGIMEN2,
     Route: 065
  6. DEXAMETHASONE [Suspect]
     Active Substance: DEXAMETHASONE
     Dosage: ON DAYS 1, 2, 8, 9, 15, 16, 22,AND 23- REGIMEN3
     Route: 065
  7. LENALIDOMIDE [Suspect]
     Active Substance: LENALIDOMIDE
     Indication: Plasma cell myeloma
     Dosage: 5 MG/D ON DAYS 121
     Route: 048
  8. CYCLOPHOSPHAMIDE [Suspect]
     Active Substance: CYCLOPHOSPHAMIDE
     Indication: Plasma cell myeloma
     Dosage: DOSE UNKNOWN
     Route: 042
  9. PLERIXAFOR [Concomitant]
     Active Substance: PLERIXAFOR
     Indication: Plasma cell myeloma
     Dosage: 0.24 MILLIGRAM/KILOGRAM
     Route: 058
  10. FILGRASTIM [Concomitant]
     Active Substance: FILGRASTIM
     Indication: Plasma cell myeloma
     Dosage: 400 MICROGRAM/SQ. METER
     Route: 058

REACTIONS (3)
  - Diarrhoea [Unknown]
  - Neuropathy peripheral [Recovering/Resolving]
  - Therapeutic product effect incomplete [Unknown]
